FAERS Safety Report 9581052 (Version 5)
Quarter: 2014Q1

REPORT INFORMATION
  Report Type: Spontaneous
  Country: US (occurrence: US)
  Receive Date: 20131002
  Receipt Date: 20140103
  Transmission Date: 20141002
  Serious: Yes (Hospitalization)
  Sender: FDA-Public Use
  Company Number: US-GILEAD-2013-0084485

PATIENT
  Sex: Female

DRUGS (1)
  1. LETAIRIS [Suspect]
     Indication: PULMONARY ARTERIAL HYPERTENSION
     Dosage: 10 MG, QD
     Route: 048
     Dates: start: 20120126

REACTIONS (8)
  - Fall [Unknown]
  - Localised infection [Unknown]
  - Excoriation [Unknown]
  - Infection [Unknown]
  - Vertigo [Unknown]
  - Chest pain [Unknown]
  - Dyspnoea [Unknown]
  - Oedema peripheral [Unknown]
